FAERS Safety Report 9687091 (Version 1)
Quarter: 2013Q4

REPORT INFORMATION
  Report Type: Spontaneous
  Country: US (occurrence: US)
  Receive Date: 20131113
  Receipt Date: 20131113
  Transmission Date: 20140711
  Serious: No
  Sender: FDA-Public Use
  Company Number: US-009507513-1310USA008542

PATIENT
  Sex: Male

DRUGS (1)
  1. SINEMET [Suspect]
     Dosage: 10/100MG
     Route: 048

REACTIONS (4)
  - Head titubation [Unknown]
  - Drug dose omission [Unknown]
  - Adverse event [Unknown]
  - Tardive dyskinesia [Unknown]
